FAERS Safety Report 19676725 (Version 2)
Quarter: 2021Q4

REPORT INFORMATION
  Report Type: Report from Study
  Country: US (occurrence: US)
  Receive Date: 20210810
  Receipt Date: 20211103
  Transmission Date: 20220303
  Serious: Yes (Other)
  Sender: FDA-Public Use
  Company Number: US-ABBVIE-21K-163-4026796-00

PATIENT
  Age: 55 Year
  Sex: Female

DRUGS (2)
  1. RINVOQ [Suspect]
     Active Substance: UPADACITINIB
     Indication: Rheumatoid arthritis
     Route: 048
  2. JANSSEN COVID-19 VACCINE [Concomitant]
     Active Substance: AD26.COV2.S
     Indication: COVID-19 immunisation
     Route: 030
     Dates: start: 20210309, end: 20210309

REACTIONS (8)
  - Therapeutic procedure [Unknown]
  - Coronary arterial stent insertion [Unknown]
  - Sinus operation [Unknown]
  - Staphylococcal infection [Unknown]
  - Diarrhoea [Unknown]
  - Weight decreased [Unknown]
  - Musculoskeletal disorder [Unknown]
  - Speech disorder [Unknown]

NARRATIVE: CASE EVENT DATE: 20200901
